FAERS Safety Report 23866593 (Version 1)
Quarter: 2024Q2

REPORT INFORMATION
  Report Type: Spontaneous
  Country: US (occurrence: US)
  Receive Date: 20240517
  Receipt Date: 20240517
  Transmission Date: 20240716
  Serious: No
  Sender: FDA-Public Use
  Company Number: US-IMP-2024000238

PATIENT
  Sex: Female
  Weight: 151 kg

DRUGS (1)
  1. VEVYE [Suspect]
     Active Substance: CYCLOSPORINE
     Indication: Ocular discomfort
     Dosage: 1 DROP TWICE A DAY IN BOTH EYES
     Route: 047
     Dates: start: 20240314, end: 20240316

REACTIONS (2)
  - Condition aggravated [Unknown]
  - Eye irritation [Unknown]

NARRATIVE: CASE EVENT DATE: 20240301
